FAERS Safety Report 4893061-7 (Version None)
Quarter: 2005Q4

REPORT INFORMATION
  Report Type: 
  Country: None (occurrence: None)
  Receive Date: 20051220
  Receipt Date: 20050906
  Transmission Date: 20060501
  Serious: Yes (Other)
  Sender: FDA-Public Use
  Company Number: 417109

PATIENT
  Age: 78 Year
  Sex: Female

DRUGS (8)
  1. BONIVA [Suspect]
     Dates: start: 20050715, end: 20050815
  2. ASPIRIN [Concomitant]
  3. PREVACID [Concomitant]
  4. LESCOL [Concomitant]
  5. CENTRUM (MINERALS NOS/MULTIVITAMINS NOS) [Concomitant]
  6. CALCIUM (CALCIUM) [Concomitant]
  7. MAGNESIUM SULFATE [Concomitant]
  8. B-12 (CYANOCOBALAMIN) [Concomitant]

REACTIONS (6)
  - ARTHROPOD BITE [None]
  - DYSPEPSIA [None]
  - ERYTHEMA [None]
  - FEELING HOT [None]
  - GASTROOESOPHAGEAL REFLUX DISEASE [None]
  - OEDEMA PERIPHERAL [None]
